APPROVED DRUG PRODUCT: BROMPHENIRAMINE MALEATE, PSEUDOEPHEDRINE HYDROCHLORIDE AND DEXTROMETHORPHAN HYDROBROMIDE
Active Ingredient: BROMPHENIRAMINE MALEATE; DEXTROMETHORPHAN HYDROBROMIDE; PSEUDOEPHEDRINE HYDROCHLORIDE
Strength: 2MG/5ML;10MG/5ML;30MG/5ML
Dosage Form/Route: SYRUP;ORAL
Application: A202955 | Product #001
Applicant: RHODES PHARMACEUTICALS LP
Approved: Nov 5, 2020 | RLD: No | RS: No | Type: DISCN